FAERS Safety Report 25471344 (Version 1)
Quarter: 2025Q2

REPORT INFORMATION
  Report Type: Spontaneous
  Country: US (occurrence: US)
  Receive Date: 20250624
  Receipt Date: 20250624
  Transmission Date: 20250716
  Serious: No
  Sender: BRISTOL-MYERS SQUIBB COMPANY
  Company Number: US-BRISTOL-MYERS SQUIBB COMPANY-2025-089410

PATIENT
  Age: 65 Year
  Sex: Male
  Weight: 91.63 kg

DRUGS (2)
  1. POMALYST [Suspect]
     Active Substance: POMALIDOMIDE
     Indication: Kaposi^s sarcoma
     Dosage: EVERY OTHER DAY FOR 21 DAYS OUT OF 28 DAYS
     Route: 048
     Dates: start: 20210701
  2. POMALYST [Suspect]
     Active Substance: POMALIDOMIDE
     Dosage: EVERY 2 DAYS FOR 21 DAYS OUT OF 28 DAYS
     Route: 048
     Dates: start: 20210701

REACTIONS (1)
  - Product dose omission issue [Unknown]

NARRATIVE: CASE EVENT DATE: 20250620
